FAERS Safety Report 11347433 (Version 2)
Quarter: 2015Q3

REPORT INFORMATION
  Report Type: Spontaneous
  Country: US (occurrence: US)
  Receive Date: 20150803
  Receipt Date: 20150831
  Transmission Date: 20151125
  Serious: No
  Sender: FDA-Public Use
  Company Number: US-ELI_LILLY_AND_COMPANY-US201105004069

PATIENT
  Age: 51 Year
  Sex: Female
  Weight: 50.34 kg

DRUGS (3)
  1. ZYPREXA [Suspect]
     Active Substance: OLANZAPINE
     Dosage: 10 MG, UNK
     Dates: start: 20110509
  2. CYMBALTA [Suspect]
     Active Substance: DULOXETINE HYDROCHLORIDE
     Indication: DEPRESSION
     Dosage: 30 MG, QD
     Dates: start: 20110506, end: 20110510
  3. ZYPREXA [Suspect]
     Active Substance: OLANZAPINE
     Indication: MOOD ALTERED
     Dosage: 5 MG, UNK
     Dates: start: 20110507, end: 20110508

REACTIONS (4)
  - Restlessness [Recovered/Resolved]
  - Insomnia [Recovered/Resolved]
  - Bipolar disorder [Recovered/Resolved]
  - Mania [Recovered/Resolved]

NARRATIVE: CASE EVENT DATE: 20110507
